FAERS Safety Report 13478880 (Version 1)
Quarter: 2017Q2

REPORT INFORMATION
  Report Type: Spontaneous
  Country: US (occurrence: US)
  Receive Date: 20170425
  Receipt Date: 20170425
  Transmission Date: 20170830
  Serious: Yes (Death, Other)
  Sender: FDA-Public Use
  Company Number: US-BAYER-2017-073227

PATIENT
  Age: 52 Year
  Sex: Female

DRUGS (5)
  1. WARFARIN [Concomitant]
     Active Substance: WARFARIN
     Dosage: UNK
  2. LETROZOLE. [Suspect]
     Active Substance: LETROZOLE
  3. TICAGRELOR [Concomitant]
     Active Substance: TICAGRELOR
     Dosage: 90 MG, BID
  4. DENOSUMAB [Suspect]
     Active Substance: DENOSUMAB
     Dosage: UNK
  5. ACETYLSALICYLIC ACID({=100 MG) [Suspect]
     Active Substance: ASPIRIN
     Indication: ANTIPLATELET THERAPY

REACTIONS (4)
  - Multiple organ dysfunction syndrome [Fatal]
  - Thrombosis [None]
  - Cardiogenic shock [Fatal]
  - Drug ineffective [None]
